FAERS Safety Report 16301785 (Version 1)
Quarter: 2019Q2

REPORT INFORMATION
  Report Type: Spontaneous
  Country: US (occurrence: US)
  Receive Date: 20190511
  Receipt Date: 20190511
  Transmission Date: 20190711
  Serious: No
  Sender: FDA-Public Use
  Company Number: US-ALKERMES INC.-ALK-2019-001404

PATIENT
  Age: 48 Year
  Sex: Female

DRUGS (1)
  1. VIVITROL [Suspect]
     Active Substance: NALTREXONE
     Indication: ALCOHOLISM
     Dosage: 380 MG, QMO
     Route: 030

REACTIONS (6)
  - Memory impairment [Recovered/Resolved]
  - Arthralgia [Recovered/Resolved]
  - Injection site reaction [Recovered/Resolved]
  - Injection site mass [Recovered/Resolved]
  - Alcoholism [Unknown]
  - Weight decreased [Recovered/Resolved]
